FAERS Safety Report 18410537 (Version 5)
Quarter: 2022Q2

REPORT INFORMATION
  Report Type: Spontaneous
  Country: US (occurrence: US)
  Receive Date: 20201021
  Receipt Date: 20220502
  Transmission Date: 20220721
  Serious: No
  Sender: FDA-Public Use
  Company Number: US-PFIZER INC-2018401709

PATIENT
  Age: 40 Year
  Sex: Female
  Weight: 63 kg

DRUGS (8)
  1. LYRICA [Suspect]
     Active Substance: PREGABALIN
     Indication: Seizure
     Dosage: 650 MG, DAILY (400 MG IN THE DAY, AND 250 MG AT BEDTIME/NIGHT)
     Route: 048
     Dates: start: 2008
  2. LYRICA [Suspect]
     Active Substance: PREGABALIN
     Dosage: 650 MG, DAILY (4 CAPSULE (400 MG)/DURING THE DAY AND 2 CAPSULE (200 MG) WITH 50 MG CAPSULE FOR 250)
     Route: 048
  3. LYRICA [Suspect]
     Active Substance: PREGABALIN
     Dosage: 650 MG, DAILY (TAKE 6 OF THE 100^S A DAY AND 1 OF THE 50MG A DAY) (TAKE SIX 100 MG OF LYRICA AND ON)
     Route: 048
  4. LYRICA [Suspect]
     Active Substance: PREGABALIN
     Dosage: 650 MG, DAILY (50 MG EVERY NIGHT AT BEDTIME, LYRICA 100 MG SIG: 4 (EVERY MORNING) AND 2 (EVENING)
     Route: 048
  5. LYRICA [Suspect]
     Active Substance: PREGABALIN
     Dosage: 650 MG, DAILY  (100MG QID (4XDAY) WITH ADDITIONAL 250MG QHS (AT BEDTIME))
     Route: 048
  6. LYRICA [Suspect]
     Active Substance: PREGABALIN
     Dosage: 550 MG, DAILY (100 MG 4 TIMES A DAY AND 50 MG 2 DF AT BEDTIME WITH 50 MG EVERY NIGHT AT BEDTIME)
     Route: 048
  7. LYRICA [Suspect]
     Active Substance: PREGABALIN
     Dosage: 600 MG, DAILY (100MG, TAKE 1 CAPSULE BY MOUTH 4 TIMES DAILY AND ADDITIONAL 2 TABLETS AT BEDTIME)
     Route: 048
  8. LYRICA [Suspect]
     Active Substance: PREGABALIN
     Dosage: 650 (100MG, TAKE 1 CAPSULE (QID) WITH 2 CAPS AT BEDTIME WITH 50MG)

REACTIONS (2)
  - Prescribed overdose [Unknown]
  - Product dispensing issue [Unknown]

NARRATIVE: CASE EVENT DATE: 20080101
